FAERS Safety Report 16753450 (Version 1)
Quarter: 2019Q3

REPORT INFORMATION
  Report Type: Spontaneous
  Country: GB (occurrence: GB)
  Receive Date: 20190829
  Receipt Date: 20190829
  Transmission Date: 20191005
  Serious: Yes (Other)
  Sender: FDA-Public Use
  Company Number: GB-TEVA-2019-GB-1097951

PATIENT
  Age: 70 Year
  Sex: Female
  Weight: 53.52 kg

DRUGS (4)
  1. COCODAMOL [Concomitant]
     Active Substance: ACETAMINOPHEN\CODEINE PHOSPHATE
  2. IBUPROFEN. [Concomitant]
     Active Substance: IBUPROFEN
  3. NITROFURANTOIN. [Suspect]
     Active Substance: NITROFURANTOIN
     Route: 065
  4. GLUCOSAMINE SULFATE [Concomitant]
     Active Substance: GLUCOSAMINE SULFATE

REACTIONS (4)
  - Nausea [Not Recovered/Not Resolved]
  - Feeling abnormal [Unknown]
  - Headache [Not Recovered/Not Resolved]
  - Dizziness [Not Recovered/Not Resolved]

NARRATIVE: CASE EVENT DATE: 20190522
